FAERS Safety Report 15895932 (Version 7)
Quarter: 2020Q1

REPORT INFORMATION
  Report Type: Report from Study
  Country: BR (occurrence: BR)
  Receive Date: 20190131
  Receipt Date: 20200228
  Transmission Date: 20200409
  Serious: Yes (Hospitalization)
  Sender: FDA-Public Use
  Company Number: BR-JNJFOC-20190129674

PATIENT
  Age: 58 Year
  Sex: Male
  Weight: 78 kg

DRUGS (10)
  1. STELARA [Suspect]
     Active Substance: USTEKINUMAB
     Route: 042
     Dates: start: 20181112
  2. CAPTOPRIL. [Concomitant]
     Active Substance: CAPTOPRIL
     Route: 065
  3. CALCIUM [Concomitant]
     Active Substance: CALCIUM
     Route: 065
  4. ASCORBIC ACID. [Concomitant]
     Active Substance: ASCORBIC ACID
     Route: 065
  5. POTASSIUM [Concomitant]
     Active Substance: POTASSIUM
     Route: 065
  6. SULFASALAZINE. [Concomitant]
     Active Substance: SULFASALAZINE
     Route: 065
  7. HYDROCHLOROTHIAZIDE. [Concomitant]
     Active Substance: HYDROCHLOROTHIAZIDE
     Route: 065
  8. SULFADOXINE [Concomitant]
     Active Substance: SULFADOXINE
     Route: 048
  9. PREDNISONE. [Concomitant]
     Active Substance: PREDNISONE
     Route: 065
  10. STELARA [Suspect]
     Active Substance: USTEKINUMAB
     Indication: CROHN^S DISEASE
     Route: 042
     Dates: start: 20181112

REACTIONS (11)
  - Pain in extremity [Not Recovered/Not Resolved]
  - Anaemia [Unknown]
  - Vomiting [Unknown]
  - Nasopharyngitis [Unknown]
  - Crohn^s disease [Unknown]
  - Haemorrhoidal haemorrhage [Unknown]
  - Visual impairment [Not Recovered/Not Resolved]
  - Product dose omission [Unknown]
  - Decreased appetite [Unknown]
  - Infection [Recovered/Resolved]
  - Influenza [Not Recovered/Not Resolved]

NARRATIVE: CASE EVENT DATE: 201901
